FAERS Safety Report 8500299 (Version 3)
Quarter: 2013Q2

REPORT INFORMATION
  Report Type: Spontaneous
  Country: US (occurrence: US)
  Receive Date: 20120409
  Receipt Date: 20130507
  Transmission Date: 20140414
  Serious: Yes (Hospitalization, Other)
  Sender: FDA-Public Use
  Company Number: US-BAYER-2012-031657

PATIENT
  Age: 20 Year
  Sex: Female
  Weight: 56.69 kg

DRUGS (5)
  1. YASMIN [Suspect]
     Indication: ACNE
     Dosage: UNK
     Dates: start: 200608, end: 200706
  2. LEVOTHYROXIN [Concomitant]
     Indication: THYROID DISORDER
     Dosage: UNK
     Dates: start: 1994
  3. LIPITOR [Concomitant]
     Indication: BLOOD CHOLESTEROL INCREASED
     Dosage: UNK
     Dates: start: 1994
  4. ZESTORETIC [Concomitant]
     Indication: HYPERTENSION
     Dosage: UNK
     Dates: start: 2001
  5. ADDERALL [Concomitant]
     Indication: ATTENTION DEFICIT/HYPERACTIVITY DISORDER
     Dosage: UNK
     Dates: start: 2002, end: 2008

REACTIONS (4)
  - Thrombosis [None]
  - Pain [None]
  - Subclavian vein thrombosis [None]
  - Pulmonary embolism [None]
